FAERS Safety Report 5490966-3 (Version None)
Quarter: 2007Q4

REPORT INFORMATION
  Report Type: 
  Country: None (occurrence: None)
  Receive Date: 20071019
  Receipt Date: 20071008
  Transmission Date: 20080405
  Serious: Yes (Other)
  Sender: FDA-Public Use
  Company Number: US-PFIZER INC-2007085055

PATIENT

DRUGS (4)
  1. SOLU-MEDROL [Suspect]
  2. ROCEPHIN [Interacting]
  3. LOVENOX [Interacting]
  4. WARFARIN SODIUM [Interacting]
     Route: 048

REACTIONS (6)
  - ANAEMIA [None]
  - DRUG INTERACTION [None]
  - GASTROINTESTINAL HAEMORRHAGE [None]
  - HYPOXIA [None]
  - INTERNATIONAL NORMALISED RATIO INCREASED [None]
  - RESPIRATORY ACIDOSIS [None]
